FAERS Safety Report 4884860-6 (Version None)
Quarter: 2006Q1

REPORT INFORMATION
  Report Type: 
  Country: None (occurrence: None)
  Receive Date: 20060119
  Receipt Date: 20051209
  Transmission Date: 20060701
  Serious: Yes (Other)
  Sender: FDA-Public Use
  Company Number: IE-GLAXOSMITHKLINE-B0403251A

PATIENT
  Sex: Female
  Weight: 63.8 kg

DRUGS (6)
  1. LAMICTAL [Suspect]
     Indication: ABNORMAL BEHAVIOUR
     Dates: start: 20050920
  2. SEROQUEL [Concomitant]
  3. CITALOPRAM HYDROBROMIDE [Concomitant]
     Dosage: 10MG PER DAY
  4. LORAZEPAM [Concomitant]
     Dosage: 1MG PER DAY
  5. CENTYL [Concomitant]
     Dosage: 1TAB PER DAY
  6. LANSOPRAZOLE [Concomitant]
     Dosage: 30MG PER DAY

REACTIONS (5)
  - DEMENTIA [None]
  - EMOTIONAL DISORDER [None]
  - PARANOIA [None]
  - PERSONALITY CHANGE [None]
  - VERBAL ABUSE [None]
